FAERS Safety Report 7285177-5 (Version None)
Quarter: 2011Q1

REPORT INFORMATION
  Report Type: 
  Country: None (occurrence: None)
  Receive Date: 20110210
  Receipt Date: 20110119
  Transmission Date: 20110831
  Serious: Yes (Other)
  Sender: FDA-Public Use
  Company Number: JP-ASTRAZENECA-2011SE07480

PATIENT

DRUGS (1)
  1. FOSCARNET [Suspect]
     Route: 042

REACTIONS (1)
  - RENAL SALT-WASTING SYNDROME [None]
